FAERS Safety Report 5764158-4 (Version None)
Quarter: 2008Q2

REPORT INFORMATION
  Report Type: 
  Country: None (occurrence: None)
  Receive Date: 20080609
  Receipt Date: 20080414
  Transmission Date: 20081010
  Serious: No
  Sender: FDA-Public Use
  Company Number: 002#2#2008-00290

PATIENT
  Age: 81 Year
  Sex: Female
  Weight: 48.0813 kg

DRUGS (8)
  1. NEUPRO [Suspect]
     Indication: PARKINSON'S DISEASE
     Dosage: 4MG/24H, 1 IN 1 D, TRANSDERMAL
     Route: 062
  2. SINEMET [Concomitant]
  3. PLAVIX [Concomitant]
  4. FAMOTIDINE [Concomitant]
  5. IRON [Concomitant]
  6. CALCIUM [Concomitant]
  7. ANTIBIOTIC [Concomitant]
  8. DIARRHEA MEDICATION [Concomitant]

REACTIONS (3)
  - CONFUSIONAL STATE [None]
  - CYSTITIS [None]
  - DIARRHOEA [None]
